FAERS Safety Report 8822991 (Version 2)
Quarter: 2015Q2

REPORT INFORMATION
  Report Type: Report from Study
  Country: US (occurrence: US)
  Receive Date: 20121003
  Receipt Date: 20150625
  Transmission Date: 20150821
  Serious: Yes (Death)
  Sender: FDA-Public Use
  Company Number: US-ROCHE-1130699

PATIENT
  Sex: Female
  Weight: 85.81 kg

DRUGS (5)
  1. RITUXAN [Suspect]
     Active Substance: RITUXIMAB
     Indication: CHRONIC LYMPHOCYTIC LEUKAEMIA
     Route: 042
  2. ARANESP [Concomitant]
     Active Substance: DARBEPOETIN ALFA
     Route: 065
  3. DECADRON [Concomitant]
     Active Substance: DEXAMETHASONE
     Route: 042
  4. TYLENOL [Concomitant]
     Active Substance: ACETAMINOPHEN
     Route: 048
  5. BENADRYL [Concomitant]
     Active Substance: DIPHENHYDRAMINE HYDROCHLORIDE
     Route: 048

REACTIONS (4)
  - Fatigue [Unknown]
  - Asthenia [Unknown]
  - Chills [Recovering/Resolving]
  - Death [Fatal]
